FAERS Safety Report 16480992 (Version 6)
Quarter: 2020Q1

REPORT INFORMATION
  Report Type: Spontaneous
  Country: US (occurrence: US)
  Receive Date: 20190626
  Receipt Date: 20200225
  Transmission Date: 20200409
  Serious: Yes (Death)
  Sender: FDA-Public Use
  Company Number: US-ACTELION-A-NJ2019-190191

PATIENT
  Sex: Female
  Weight: 77.1 kg

DRUGS (4)
  1. UPTRAVI [Suspect]
     Active Substance: SELEXIPAG
     Indication: PULMONARY ARTERIAL HYPERTENSION
     Dosage: 800 MCG, BID
     Route: 048
  2. UPTRAVI [Suspect]
     Active Substance: SELEXIPAG
     Dosage: 400 MCG, BID
     Route: 048
  3. LETAIRIS [Concomitant]
     Active Substance: AMBRISENTAN
  4. UPTRAVI [Suspect]
     Active Substance: SELEXIPAG
     Dosage: 600 MCG, BID
     Route: 048

REACTIONS (11)
  - Diarrhoea [Unknown]
  - Headache [Unknown]
  - Sputum discoloured [Unknown]
  - Heart rate decreased [Unknown]
  - Pain in extremity [Unknown]
  - Eructation [Unknown]
  - Cough [Unknown]
  - Death [Fatal]
  - Upper respiratory tract infection [Unknown]
  - Muscle spasms [Unknown]
  - Back pain [Unknown]
